FAERS Safety Report 7990004-4 (Version None)
Quarter: 2011Q4

REPORT INFORMATION
  Report Type: 
  Country: None (occurrence: None)
  Receive Date: 20111219
  Receipt Date: 20110505
  Transmission Date: 20120403
  Serious: No
  Sender: FDA-Public Use
  Company Number: US-ASTRAZENECA-2011SE26203

PATIENT
  Age: 40 Year
  Sex: Male
  Weight: 83.9 kg

DRUGS (2)
  1. CRESTOR [Suspect]
     Route: 048
     Dates: start: 20110401
  2. EXFORGE [Concomitant]
     Indication: HYPERTENSION

REACTIONS (2)
  - FEELING JITTERY [None]
  - INSOMNIA [None]
